FAERS Safety Report 5690605-2 (Version None)
Quarter: 2008Q1

REPORT INFORMATION
  Report Type: 
  Country: None (occurrence: None)
  Receive Date: 20080331
  Receipt Date: 20080331
  Transmission Date: 20080703
  Serious: No
  Sender: FDA-Public Use
  Company Number: None

PATIENT
  Sex: Female

DRUGS (1)
  1. SINGULAIR [Suspect]
     Indication: ASTHMA
     Dosage: 10 MG -ONE PILL- SID PO
     Route: 048
     Dates: start: 20070301

REACTIONS (4)
  - ANGER [None]
  - ANXIETY [None]
  - MOOD SWINGS [None]
  - POSTPARTUM DEPRESSION [None]
